FAERS Safety Report 8535257-9 (Version None)
Quarter: 2012Q3

REPORT INFORMATION
  Report Type: 
  Country: None (occurrence: None)
  Receive Date: 20120725
  Receipt Date: 20120718
  Transmission Date: 20120928
  Serious: Yes (Hospitalization)
  Sender: FDA-Public Use
  Company Number: US-009507513-1207USA007601

PATIENT

DRUGS (4)
  1. VICTRELIS [Suspect]
     Indication: HEPATITIS C
     Dosage: UNK
     Route: 048
     Dates: start: 20120501
  2. PROCRIT [Concomitant]
  3. PEGASYS [Suspect]
  4. RIBASPHERE [Suspect]

REACTIONS (1)
  - ADVERSE EVENT [None]
